FAERS Safety Report 10911402 (Version 1)
Quarter: 2015Q1

REPORT INFORMATION
  Report Type: Spontaneous
  Country: ZA (occurrence: ZA)
  Receive Date: 20150313
  Receipt Date: 20150313
  Transmission Date: 20150721
  Serious: Yes (Hospitalization, Other)
  Sender: FDA-Public Use
  Company Number: ZA-009507513-1503ZAF003863

PATIENT
  Age: 38 Year
  Sex: Female

DRUGS (1)
  1. IMPLANON [Suspect]
     Active Substance: ETONOGESTREL
     Route: 059

REACTIONS (4)
  - Headache [Unknown]
  - Nausea [Unknown]
  - Mood swings [Unknown]
  - Sepsis [Unknown]
